FAERS Safety Report 4824898-8 (Version None)
Quarter: 2005Q4

REPORT INFORMATION
  Report Type: 
  Country: None (occurrence: None)
  Receive Date: 20051110
  Receipt Date: 20051103
  Transmission Date: 20060501
  Serious: Yes (Hospitalization)
  Sender: FDA-Public Use
  Company Number: GB-GLAXOSMITHKLINE-B0399517A

PATIENT
  Age: 15 Year
  Sex: Female

DRUGS (1)
  1. ALKERAN [Suspect]
     Route: 042
     Dates: start: 20051102

REACTIONS (1)
  - CONVULSION [None]
